FAERS Safety Report 15881672 (Version 2)
Quarter: 2019Q1

REPORT INFORMATION
  Report Type: Spontaneous
  Country: LB (occurrence: LB)
  Receive Date: 20190128
  Receipt Date: 20190213
  Transmission Date: 20190417
  Serious: Yes (Other)
  Sender: FDA-Public Use
  Company Number: PHHY2019LB017590

PATIENT
  Sex: Female

DRUGS (1)
  1. KISQALI FEMARA CO-PACK [Suspect]
     Active Substance: LETROZOLE\RIBOCICLIB
     Indication: BREAST CANCER FEMALE
     Dosage: 600 MG, QD
     Route: 048
     Dates: start: 20181210, end: 20190115

REACTIONS (1)
  - Hepatotoxicity [Recovering/Resolving]
